FAERS Safety Report 25705626 (Version 1)
Quarter: 2025Q3

REPORT INFORMATION
  Report Type: Spontaneous
  Country: US (occurrence: US)
  Receive Date: 20250820
  Receipt Date: 20250820
  Transmission Date: 20251021
  Serious: Yes (Hospitalization, Other)
  Sender: MERCK SHARP & DOHME LLC
  Company Number: US-009507513-2319687

PATIENT
  Sex: Female

DRUGS (1)
  1. KEYTRUDA [Suspect]
     Active Substance: PEMBROLIZUMAB
     Indication: Uterine cancer
     Route: 065
     Dates: start: 2023, end: 202506

REACTIONS (10)
  - Mental status changes [Unknown]
  - Dehydration [Unknown]
  - Impaired gastric emptying [Unknown]
  - Neuropathy peripheral [Unknown]
  - Delirium [Unknown]
  - Psychotic disorder [Unknown]
  - Hallucination [Unknown]
  - Neurological symptom [Unknown]
  - Motor dysfunction [Unknown]
  - Radiotherapy [Unknown]
